FAERS Safety Report 14899408 (Version 1)
Quarter: 2018Q2

REPORT INFORMATION
  Report Type: Report from Study
  Country: JP (occurrence: JP)
  Receive Date: 20180516
  Receipt Date: 20180516
  Transmission Date: 20180711
  Serious: Yes (Other)
  Sender: FDA-Public Use
  Company Number: JP-SUN PHARMACEUTICAL INDUSTRIES LTD-2018RR-172870

PATIENT
  Age: 52 Year
  Sex: Female

DRUGS (2)
  1. CISPLATIN. [Suspect]
     Active Substance: CISPLATIN
     Indication: OVARIAN CANCER METASTATIC
     Dosage: 5 CYCLES
     Route: 065
  2. CARBOPLATIN. [Suspect]
     Active Substance: CARBOPLATIN
     Indication: OVARIAN CANCER METASTATIC
     Dosage: UNK
     Route: 065

REACTIONS (2)
  - Drug effect incomplete [Unknown]
  - Hypersensitivity [Recovered/Resolved]
